FAERS Safety Report 7525332-X (Version None)
Quarter: 2011Q2

REPORT INFORMATION
  Report Type: 
  Country: None (occurrence: None)
  Receive Date: 20110606
  Receipt Date: 20110601
  Transmission Date: 20111010
  Serious: Yes (Other)
  Sender: FDA-Public Use
  Company Number: US-SANOFI-AVENTIS-2010SA076142

PATIENT
  Age: 71 Year
  Sex: Male

DRUGS (1)
  1. PLAVIX [Suspect]
     Route: 048
     Dates: start: 19980101, end: 20100101

REACTIONS (16)
  - RENAL DISORDER [None]
  - VISION BLURRED [None]
  - FEELING ABNORMAL [None]
  - CHEST PAIN [None]
  - ASTHENIA [None]
  - SKIN ODOUR ABNORMAL [None]
  - DYSGEUSIA [None]
  - PRODUCT ODOUR ABNORMAL [None]
  - ISCHAEMIA [None]
  - ABDOMINAL PAIN UPPER [None]
  - PRODUCT QUALITY ISSUE [None]
  - BREATH ODOUR [None]
  - WHEEZING [None]
  - HYPERHIDROSIS [None]
  - PNEUMONIA [None]
  - COUGH [None]
